FAERS Safety Report 5486058-X (Version None)
Quarter: 2007Q4

REPORT INFORMATION
  Report Type: 
  Country: None (occurrence: None)
  Receive Date: 20071015
  Receipt Date: 20071003
  Transmission Date: 20080405
  Serious: Yes (Other)
  Sender: FDA-Public Use
  Company Number: US-PFIZER INC-2007083760

PATIENT
  Sex: Female
  Weight: 85.3 kg

DRUGS (8)
  1. CHANTIX [Suspect]
     Indication: SMOKING CESSATION THERAPY
     Dates: start: 20070601, end: 20070601
  2. CYMBALTA [Concomitant]
  3. SEROQUEL [Concomitant]
  4. SYNTHROID [Concomitant]
  5. TEGRETOL [Concomitant]
  6. ATIVAN [Concomitant]
  7. PRILOSEC [Concomitant]
  8. GEODON [Concomitant]

REACTIONS (6)
  - DEPRESSION [None]
  - FATIGUE [None]
  - MALAISE [None]
  - NAUSEA [None]
  - SUICIDE ATTEMPT [None]
  - VOMITING [None]
